FAERS Safety Report 22976030 (Version 2)
Quarter: 2024Q1

REPORT INFORMATION
  Report Type: Spontaneous
  Country: BE (occurrence: BE)
  Receive Date: 20230925
  Receipt Date: 20240219
  Transmission Date: 20240410
  Serious: Yes (Hospitalization, Other)
  Sender: FDA-Public Use
  Company Number: BE-BRISTOL-MYERS SQUIBB COMPANY-2023-085306

PATIENT
  Age: 83 Year
  Sex: Female

DRUGS (33)
  1. DEXAMETHASONE [Suspect]
     Active Substance: DEXAMETHASONE
     Dosage: 20.000MG
     Route: 048
     Dates: start: 20191213, end: 20200403
  2. DEXAMETHASONE [Suspect]
     Active Substance: DEXAMETHASONE
     Dosage: 20.000MG
     Route: 048
     Dates: start: 20200509, end: 20200604
  3. DEXAMETHASONE [Suspect]
     Active Substance: DEXAMETHASONE
     Indication: Product used for unknown indication
     Dosage: 40.000MG
     Route: 048
     Dates: start: 20190308, end: 20190627
  4. DEXAMETHASONE [Suspect]
     Active Substance: DEXAMETHASONE
     Dosage: 40.000MG
     Route: 048
     Dates: start: 20181214, end: 20190307
  5. DEXAMETHASONE [Suspect]
     Active Substance: DEXAMETHASONE
     Dosage: 40.000MG
     Route: 048
     Dates: start: 20190628, end: 20190919
  6. DEXAMETHASONE [Suspect]
     Active Substance: DEXAMETHASONE
     Indication: Product used for unknown indication
     Route: 065
  7. DEXAMETHASONE [Suspect]
     Active Substance: DEXAMETHASONE
     Indication: Product used for unknown indication
     Route: 065
  8. REVLIMID [Suspect]
     Active Substance: LENALIDOMIDE
     Dosage: 15.000MG QD
     Route: 048
     Dates: start: 20190118, end: 20190131
  9. REVLIMID [Suspect]
     Active Substance: LENALIDOMIDE
     Dosage: 15.000MG QD
     Route: 048
     Dates: start: 20190208, end: 20190228
  10. REVLIMID [Suspect]
     Active Substance: LENALIDOMIDE
     Dosage: 20.000MG QD
     Route: 048
     Dates: start: 20190308, end: 20190328
  11. REVLIMID [Suspect]
     Active Substance: LENALIDOMIDE
     Dosage: 20.000MG QD
     Route: 048
     Dates: start: 20190405, end: 20190425
  12. REVLIMID [Suspect]
     Active Substance: LENALIDOMIDE
     Indication: Product used for unknown indication
     Dosage: 25.000MG QD
     Route: 048
     Dates: start: 20190531, end: 20190620
  13. REVLIMID [Suspect]
     Active Substance: LENALIDOMIDE
     Dosage: 25.000MG QD
     Route: 048
     Dates: start: 20190111, end: 20190117
  14. REVLIMID [Suspect]
     Active Substance: LENALIDOMIDE
     Dosage: 25.000MG QD
     Route: 048
     Dates: start: 20190503, end: 20190523
  15. REVLIMID [Suspect]
     Active Substance: LENALIDOMIDE
     Dosage: 25.000MG QD
     Route: 048
     Dates: start: 20190628, end: 20190718
  16. REVLIMID [Suspect]
     Active Substance: LENALIDOMIDE
     Dosage: 25.000MG QD
     Route: 048
     Dates: start: 20190726, end: 20190815
  17. REVLIMID [Suspect]
     Active Substance: LENALIDOMIDE
     Dosage: 25.000MG QD
     Route: 048
     Dates: start: 20190823, end: 20190912
  18. REVLIMID [Suspect]
     Active Substance: LENALIDOMIDE
     Dosage: 25.000MG QD
     Route: 048
     Dates: start: 20191213, end: 20200102
  19. REVLIMID [Suspect]
     Active Substance: LENALIDOMIDE
     Dosage: 25.000MG QD
     Route: 048
     Dates: start: 20200110, end: 20200130
  20. REVLIMID [Suspect]
     Active Substance: LENALIDOMIDE
     Dosage: 25.000MG QD
     Route: 048
     Dates: start: 20200207, end: 20200227
  21. REVLIMID [Suspect]
     Active Substance: LENALIDOMIDE
     Dosage: 25.000MG QD
     Route: 048
     Dates: start: 20200306, end: 20200326
  22. REVLIMID [Suspect]
     Active Substance: LENALIDOMIDE
     Dosage: 25.000MG QD
     Route: 048
     Dates: start: 20200403, end: 20200423
  23. REVLIMID [Suspect]
     Active Substance: LENALIDOMIDE
     Dosage: 25.000MG QD
     Route: 048
     Dates: start: 20200508, end: 20200528
  24. REVLIMID [Suspect]
     Active Substance: LENALIDOMIDE
     Dosage: QAM
     Route: 048
     Dates: start: 20181214, end: 20190103
  25. BUMETANIDE [Concomitant]
     Active Substance: BUMETANIDE
     Indication: Product used for unknown indication
     Dosage: 2 MG
     Route: 042
     Dates: start: 20190117, end: 20190117
  26. GLUCION [Concomitant]
     Active Substance: ANHYDROUS DEXTROSE\LACTIC ACID\MAGNESIUM CHLORIDE\POTASSIUM CHLORIDE\POTASSIUM PHOSPHATE, MONOBASIC\
     Indication: Product used for unknown indication
     Dosage: 83.33ML/H
     Route: 042
     Dates: start: 20181223, end: 20181223
  27. GLUCOSE;POTASSIUM CHLORIDE [Concomitant]
     Indication: Product used for unknown indication
     Route: 065
  28. GLUCOSE;POTASSIUM CHLORIDE [Concomitant]
     Indication: Product used for unknown indication
     Route: 065
  29. POTASSIUM CHLORIDE [Concomitant]
     Active Substance: POTASSIUM CHLORIDE
     Indication: Product used for unknown indication
     Dosage: 20.000MEQ
     Route: 042
     Dates: start: 20181225, end: 20181225
  30. LASIX [Concomitant]
     Active Substance: FUROSEMIDE
     Dosage: 120 MG
     Route: 042
     Dates: start: 20190118, end: 20190121
  31. LASIX [Concomitant]
     Active Substance: FUROSEMIDE
     Indication: Product used for unknown indication
     Dosage: 40 MG
     Route: 042
     Dates: start: 20190118, end: 20190118
  32. ALIZAPRIDE HYDROCHLORIDE [Concomitant]
     Active Substance: ALIZAPRIDE HYDROCHLORIDE
     Indication: Product used for unknown indication
     Dosage: 2 TIMES
     Route: 042
     Dates: start: 20181223, end: 20181223
  33. PAMIDRONAAT [Concomitant]
     Indication: Product used for unknown indication
     Dosage: 30.000MG
     Route: 042
     Dates: start: 20181215, end: 20201223

REACTIONS (12)
  - Cardiac failure [Not Recovered/Not Resolved]
  - Gastrointestinal infection [Recovered/Resolved]
  - Hyponatraemia [Recovered/Resolved]
  - Squamous cell carcinoma of skin [Recovered/Resolved]
  - Pulmonary congestion [Unknown]
  - Hypokalaemia [Unknown]
  - Arthralgia [Recovered/Resolved]
  - Fatigue [Recovered/Resolved]
  - Malaise [Recovered/Resolved]
  - Constipation [Recovered/Resolved]
  - Dyspepsia [Not Recovered/Not Resolved]
  - Hypochloraemia [Unknown]

NARRATIVE: CASE EVENT DATE: 20181223
